FAERS Safety Report 9500289 (Version 1)
Quarter: 2013Q1

REPORT INFORMATION
  Report Type: Spontaneous
  Country: US (occurrence: None)
  Receive Date: 20130107
  Receipt Date: 20130107
  Transmission Date: 20140127
  Serious: No
  Sender: FDA-Public Use
  Company Number: PHEH2012US021017

PATIENT
  Sex: Male
  Weight: 61.2 kg

DRUGS (5)
  1. GILENYA (FINGOLIMOD) [Suspect]
     Route: 048
  2. NEURONTIN (GABAPENTIN) [Concomitant]
  3. VITAMIN D (ERGOCALCIFEROL) [Concomitant]
  4. LIDODERM(LIDOCAINE) [Concomitant]
  5. OMPERAZOLE(OMEPRAZOLE) [Concomitant]

REACTIONS (1)
  - Musculoskeletal stiffness [None]
